FAERS Safety Report 8101304-1 (Version None)
Quarter: 2012Q1

REPORT INFORMATION
  Report Type: 
  Country: None (occurrence: None)
  Receive Date: 20120131
  Receipt Date: 20120104
  Transmission Date: 20120608
  Serious: No
  Sender: FDA-Public Use
  Company Number: US-ROXANE LABORATORIES, INC.-2012-RO-00475RO

PATIENT
  Sex: Female

DRUGS (2)
  1. CALCITRIOL [Concomitant]
  2. CALCIUM ACETATE [Suspect]
     Dosage: 6003 MG
     Route: 048
     Dates: start: 20111201

REACTIONS (1)
  - BLOOD CALCIUM DECREASED [None]
